FAERS Safety Report 15469188 (Version 3)
Quarter: 2018Q4

REPORT INFORMATION
  Report Type: Spontaneous
  Country: UY (occurrence: UY)
  Receive Date: 20181005
  Receipt Date: 20181121
  Transmission Date: 20190205
  Serious: Yes (Other)
  Sender: FDA-Public Use
  Company Number: UY-ALSI-201800544

PATIENT
  Age: 50 Year
  Sex: Female

DRUGS (1)
  1. OXYGEN. [Suspect]
     Active Substance: OXYGEN
     Indication: OXYGEN THERAPY
     Route: 055

REACTIONS (2)
  - Thermal burn [Recovered/Resolved]
  - Intentional product misuse [Recovered/Resolved]
